FAERS Safety Report 8875450 (Version 2)
Quarter: 2012Q4

REPORT INFORMATION
  Report Type: 
  Country: ES (occurrence: ES)
  Receive Date: 20121030
  Receipt Date: 20121121
  Transmission Date: 20130627
  Serious: Yes (Death, Other)
  Sender: FDA-Public Use
  Company Number: ES-WATSON-2012-18437

PATIENT
  Age: 44 Year
  Sex: Female

DRUGS (4)
  1. DIAZEPAM (WATSON LABORATORIES) [Suspect]
     Indication: VICTIM OF SEXUAL ABUSE
     Dosage: UNK
     Route: 048
  2. OPIOIDS [Concomitant]
     Indication: VICTIM OF SEXUAL ABUSE
     Dosage: UNK
     Route: 065
  3. COCAINE [Concomitant]
     Indication: VICTIM OF SEXUAL ABUSE
     Dosage: UNK
     Route: 065
  4. BENZODIAZEPINE DERIVATIVES [Concomitant]
     Indication: VICTIM OF SEXUAL ABUSE
     Dosage: UNK
     Route: 065

REACTIONS (3)
  - Overdose [Unknown]
  - Intentional drug misuse [Unknown]
  - Sexual abuse [Unknown]
